FAERS Safety Report 4602373-3 (Version None)
Quarter: 2005Q1

REPORT INFORMATION
  Report Type: 
  Country: None (occurrence: None)
  Receive Date: 20050307
  Receipt Date: 20050215
  Transmission Date: 20050727
  Serious: Yes (Hospitalization)
  Sender: FDA-Public Use
  Company Number: B0372106A

PATIENT
  Age: 35 Year
  Sex: Female

DRUGS (5)
  1. EPIVIR [Suspect]
     Indication: HIV INFECTION
     Dosage: UNKNOWN
     Route: 065
  2. RETROVIR [Suspect]
     Indication: HIV INFECTION
     Dosage: UNKNOWN
     Route: 065
  3. NELFINAVIR MESYLATE (FORMULATION UNKNOWN) (NELFINAVIR MESYLATE) [Suspect]
     Indication: HIV INFECTION
     Dosage: UNKNOWN
     Route: 065
  4. COTRIM [Concomitant]
  5. AZITHROMYCIN [Concomitant]

REACTIONS (16)
  - BLOOD ALBUMIN DECREASED [None]
  - BLOOD PARATHYROID HORMONE DECREASED [None]
  - BLOOD TRIGLYCERIDES INCREASED [None]
  - CONSTIPATION [None]
  - DEHYDRATION [None]
  - GRANULOMA [None]
  - HEPATOSPLENOMEGALY [None]
  - HYPERCALCAEMIA [None]
  - HYPERVITAMINOSIS D [None]
  - IMMUNE RECONSTITUTION SYNDROME [None]
  - MARROW HYPERPLASIA [None]
  - MYCOBACTERIUM AVIUM COMPLEX INFECTION [None]
  - PANCREATITIS [None]
  - PANCYTOPENIA [None]
  - RENAL FAILURE [None]
  - SINUS TACHYCARDIA [None]
